FAERS Safety Report 9539316 (Version 1)
Quarter: 2013Q2

REPORT INFORMATION
  Report Type: Spontaneous
  Country: US (occurrence: None)
  Receive Date: 20130517
  Receipt Date: 20130517
  Transmission Date: 20140414
  Serious: No
  Sender: FDA-Public Use
  Company Number: 1000042867

PATIENT
  Age: 67 Year
  Sex: Female

DRUGS (3)
  1. VIIBRYD (VILAZODONE HYDROCHLORIDE) (10 MILLIGRAM, TABLETS) [Suspect]
     Indication: DEPRESSION
     Route: 048
     Dates: start: 201209, end: 2012
  2. DIGOXIN (DIGOXIN) [Concomitant]
  3. METOPROLOL (METOPOROLOL) [Concomitant]

REACTIONS (3)
  - Alopecia [None]
  - Crying [None]
  - Drug ineffective [None]
